FAERS Safety Report 20355264 (Version 1)
Quarter: 2022Q1

REPORT INFORMATION
  Report Type: Spontaneous
  Country: MX (occurrence: MX)
  Receive Date: 20220120
  Receipt Date: 20220120
  Transmission Date: 20220423
  Serious: Yes (Other)
  Sender: FDA-Public Use
  Company Number: MX-TEVA-2022-MX-1999723

PATIENT
  Age: 58 Year
  Sex: Male
  Weight: 95 kg

DRUGS (1)
  1. DIPRIVAN [Suspect]
     Active Substance: PROPOFOL
     Indication: Sedation
     Dosage: 1 G VIA CONTINUOUS CENTRAL VENOUS INFUSION (24 HOURS)
     Route: 050
     Dates: start: 20211223, end: 20220112

REACTIONS (3)
  - Pancreatitis acute [Not Recovered/Not Resolved]
  - Acute kidney injury [Not Recovered/Not Resolved]
  - Hypertriglyceridaemia [Not Recovered/Not Resolved]

NARRATIVE: CASE EVENT DATE: 20220101
